FAERS Safety Report 4867524-4 (Version None)
Quarter: 2005Q4

REPORT INFORMATION
  Report Type: 
  Country: None (occurrence: None)
  Receive Date: 20051228
  Receipt Date: 20050909
  Transmission Date: 20060501
  Serious: Yes (Hospitalization)
  Sender: FDA-Public Use
  Company Number: US-MERCK-0509USA01668

PATIENT
  Age: 48 Year
  Sex: Female
  Weight: 76 kg

DRUGS (10)
  1. VIOXX [Suspect]
     Indication: ARTHRALGIA
     Route: 048
     Dates: start: 19990101, end: 20040901
  2. VIOXX [Suspect]
     Route: 048
     Dates: start: 19990101, end: 20040901
  3. PROVERA [Concomitant]
     Route: 065
  4. ESTRACE [Concomitant]
     Route: 065
  5. ENDOCET [Concomitant]
     Route: 065
  6. DOVONEX [Concomitant]
     Route: 065
  7. ZIAC [Concomitant]
     Route: 065
  8. ADVIL [Concomitant]
     Route: 065
  9. ACETAMINOPHEN [Concomitant]
     Route: 065
  10. CYCLOBENZAPRINE HYDROCHLORIDE [Concomitant]
     Route: 065

REACTIONS (15)
  - BLOOD GLUCOSE INCREASED [None]
  - CAROTID ARTERY DISEASE [None]
  - DEPRESSION [None]
  - DIARRHOEA [None]
  - DILATATION ATRIAL [None]
  - DYSPNOEA [None]
  - FATIGUE [None]
  - GASTROENTERITIS [None]
  - GASTROENTERITIS VIRAL [None]
  - HEADACHE [None]
  - HYPERLIPIDAEMIA [None]
  - MYOCARDIAL INFARCTION [None]
  - PALPITATIONS [None]
  - PRINZMETAL ANGINA [None]
  - SINUS ARRHYTHMIA [None]
